FAERS Safety Report 5500444-0 (Version None)
Quarter: 2007Q4

REPORT INFORMATION
  Report Type: 
  Country: None (occurrence: None)
  Receive Date: 20071029
  Receipt Date: 20071017
  Transmission Date: 20080405
  Serious: Yes (Death)
  Sender: FDA-Public Use
  Company Number: US-ROCHE-526480

PATIENT
  Age: 66 Year

DRUGS (4)
  1. TORSEMIDE [Suspect]
     Indication: DRUG USE FOR UNKNOWN INDICATION
     Dosage: ROUTE REPORTED AS: INGESTION. CHRONICITY REPORTED AS: ACUTE ON CHRONIC TOXIC EXPOSURE.
     Route: 048
  2. ALLOPURINOL [Suspect]
     Indication: DRUG USE FOR UNKNOWN INDICATION
     Dosage: ROUTE REPORTED AS: INGESTION. CHRONICITY REPORTED AS: ACUTE ON CHRONIC TOXIC EXPOSURE.
     Route: 048
  3. AMIODARONE [Suspect]
     Indication: DRUG USE FOR UNKNOWN INDICATION
     Dosage: ROUTE REPORTED AS: INGESTION. CHRONICITY REPORTED AS: ACUTE ON CHRONIC TOXIC EXPOSURE.
     Route: 048
  4. UNSPECIFIED DRUGS [Suspect]
     Indication: DRUG USE FOR UNKNOWN INDICATION
     Route: 065

REACTIONS (1)
  - MEDICATION ERROR [None]
